FAERS Safety Report 13768175 (Version 1)
Quarter: 2017Q3

REPORT INFORMATION
  Report Type: Spontaneous
  Country: FR (occurrence: FR)
  Receive Date: 20170719
  Receipt Date: 20170719
  Transmission Date: 20171127
  Serious: Yes (Hospitalization)
  Sender: FDA-Public Use
  Company Number: FR-MERCK KGAA-2023476

PATIENT
  Age: 46 Year
  Sex: Male

DRUGS (20)
  1. RAMIPRIL. [Suspect]
     Active Substance: RAMIPRIL
  2. ARANESP [Suspect]
     Active Substance: DARBEPOETIN ALFA
     Route: 058
  3. CREON [Suspect]
     Active Substance: PANCRELIPASE AMYLASE\PANCRELIPASE LIPASE\PANCRELIPASE PROTEASE
     Route: 048
  4. IMUREL [Suspect]
     Active Substance: AZATHIOPRINE SODIUM
     Route: 048
     Dates: end: 20170609
  5. SOLU-MEDROL [Suspect]
     Active Substance: METHYLPREDNISOLONE SODIUM SUCCINATE
     Route: 042
     Dates: start: 20170609, end: 20170609
  6. REPAGLINIDE. [Suspect]
     Active Substance: REPAGLINIDE
     Route: 048
  7. CORTANCYL [Suspect]
     Active Substance: PREDNISONE
     Route: 048
  8. PARACETAMOL [Suspect]
     Active Substance: ACETAMINOPHEN
     Route: 048
  9. TACROLIMUS MONOHYDRATE [Suspect]
     Active Substance: TACROLIMUS
     Route: 048
  10. NOVOTHYROX [Suspect]
     Active Substance: LEVOTHYROXINE SODIUM
     Indication: HYPOTHYROIDISM
     Route: 048
  11. GEMCITABINE [Suspect]
     Active Substance: GEMCITABINE\GEMCITABINE HYDROCHLORIDE
     Route: 042
     Dates: end: 20170609
  12. EMEND [Suspect]
     Active Substance: APREPITANT
     Route: 048
     Dates: start: 20170609, end: 20170609
  13. TOCOPHEROL [Suspect]
     Active Substance: TOCOPHEROL
     Route: 048
  14. BACTRIM [Suspect]
     Active Substance: SULFAMETHOXAZOLE\TRIMETHOPRIM
     Route: 048
     Dates: start: 20170612, end: 20170612
  15. INEXIUM [Suspect]
     Active Substance: ESOMEPRAZOLE
     Route: 048
  16. OXALIPLATIN. [Suspect]
     Active Substance: OXALIPLATIN
     Route: 042
     Dates: start: 20170609, end: 20170609
  17. ZOPHREN [Suspect]
     Active Substance: ONDANSETRON
     Dates: start: 20170609, end: 20170609
  18. LYRICA [Suspect]
     Active Substance: PREGABALIN
     Route: 048
  19. CACIT VITAMIN D3, LEKOVIT CA [Suspect]
     Active Substance: CALCIUM\CHOLECALCIFEROL
     Route: 048
  20. IXPRIM [Suspect]
     Active Substance: ACETAMINOPHEN\TRAMADOL HYDROCHLORIDE
     Route: 048
     Dates: start: 2017

REACTIONS (7)
  - Cholestasis [Not Recovered/Not Resolved]
  - Hepatocellular injury [Not Recovered/Not Resolved]
  - Gamma-glutamyltransferase increased [Not Recovered/Not Resolved]
  - Jaundice [Not Recovered/Not Resolved]
  - Transaminases increased [Not Recovered/Not Resolved]
  - Blood alkaline phosphatase increased [Not Recovered/Not Resolved]
  - Acute kidney injury [Recovering/Resolving]

NARRATIVE: CASE EVENT DATE: 20170614
